FAERS Safety Report 25821704 (Version 1)
Quarter: 2025Q3

REPORT INFORMATION
  Report Type: Spontaneous
  Country: US (occurrence: US)
  Receive Date: 20250919
  Receipt Date: 20250919
  Transmission Date: 20251020
  Serious: No
  Sender: BIOCON
  Company Number: US-BIOCON-BCN-2025-000289

PATIENT
  Sex: Male

DRUGS (1)
  1. TACROLIMUS [Suspect]
     Active Substance: TACROLIMUS
     Indication: Product used for unknown indication

REACTIONS (7)
  - Hepatic enzyme increased [Unknown]
  - Fatigue [Unknown]
  - Impaired work ability [Unknown]
  - Pruritus [Unknown]
  - Insomnia [Unknown]
  - Asthenia [Unknown]
  - Product substitution issue [Unknown]
